FAERS Safety Report 8911090 (Version 2)
Quarter: 2012Q4

REPORT INFORMATION
  Report Type: Report from Study
  Country: US (occurrence: US)
  Receive Date: 20121116
  Receipt Date: 20121203
  Transmission Date: 20130627
  Serious: Yes (Death, Hospitalization, Other)
  Sender: FDA-Public Use
  Company Number: US-ASTELLAS-2012US007596

PATIENT
  Age: 56 Year
  Sex: Female

DRUGS (1)
  1. ERLOTINIB TABLET [Suspect]
     Indication: LUNG CARCINOMA CELL TYPE UNSPECIFIED STAGE 0
     Dosage: 150 mg, UID/QD
     Route: 048
     Dates: start: 20120815

REACTIONS (7)
  - Rash macular [Unknown]
  - Pleural effusion [Not Recovered/Not Resolved]
  - Convulsion [Recovered/Resolved]
  - Paralysis [Unknown]
  - Metastases to central nervous system [Fatal]
  - Syncope [Recovered/Resolved]
  - Urinary tract infection [Recovered/Resolved]
